FAERS Safety Report 20638144 (Version 4)
Quarter: 2022Q3

REPORT INFORMATION
  Report Type: Spontaneous
  Country: DE (occurrence: DE)
  Receive Date: 20220325
  Receipt Date: 20220805
  Transmission Date: 20221026
  Serious: Yes (Other)
  Sender: FDA-Public Use
  Company Number: DE-STADA-244234

PATIENT
  Age: 30 Year
  Sex: Female

DRUGS (9)
  1. LINEZOLID [Suspect]
     Active Substance: LINEZOLID
     Indication: Tuberculosis
     Dosage: UNK
  2. AMIKACIN [Suspect]
     Active Substance: AMIKACIN
     Indication: Tuberculosis
     Dosage: UNK
  3. LEVOFLOXACIN [Suspect]
     Active Substance: LEVOFLOXACIN
     Indication: Tuberculosis
     Dosage: 1000 MG, 1X/DAY
  4. LEVOFLOXACIN [Suspect]
     Active Substance: LEVOFLOXACIN
     Dosage: 750 MG, 1X/DAY
  5. TERIZIDONE [Concomitant]
     Active Substance: TERIZIDONE
     Indication: Tuberculosis
     Dosage: UNK
  6. TERIZIDONE [Concomitant]
     Active Substance: TERIZIDONE
     Dosage: UNK
  7. ETHAMBUTOL [Concomitant]
     Active Substance: ETHAMBUTOL HYDROCHLORIDE
     Indication: Tuberculosis
     Dosage: 1250 MG, 1X/DAY
  8. ETHAMBUTOL [Concomitant]
     Active Substance: ETHAMBUTOL HYDROCHLORIDE
     Dosage: 1000 MG, 1X/DAY
  9. VITAMIN B6 [Concomitant]
     Active Substance: PYRIDOXINE HYDROCHLORIDE
     Indication: Supplementation therapy

REACTIONS (3)
  - Neuropathy peripheral [Recovering/Resolving]
  - Myopathy [Recovering/Resolving]
  - Off label use [Unknown]
